FAERS Safety Report 14137423 (Version 2)
Quarter: 2018Q1

REPORT INFORMATION
  Report Type: Spontaneous
  Country: US (occurrence: US)
  Receive Date: 20171027
  Receipt Date: 20180104
  Transmission Date: 20180508
  Serious: Yes (Hospitalization, Other)
  Sender: FDA-Public Use
  Company Number: US-PFIZER INC-2017461698

PATIENT
  Age: 65 Year
  Sex: Male

DRUGS (2)
  1. ZOLOFT [Suspect]
     Active Substance: SERTRALINE HYDROCHLORIDE
     Indication: DEPRESSION
     Dosage: 200 MG, DAILY (100 MG /QTY 60 /DAY SUPPLY 30)
     Dates: start: 2003
  2. WELLBUTRIN XL [Suspect]
     Active Substance: BUPROPION HYDROCHLORIDE
     Indication: DEPRESSION
     Dosage: 150 MG, DAILY
     Dates: start: 2003

REACTIONS (4)
  - Accident [Recovered/Resolved]
  - Face crushing [Recovered/Resolved]
  - Face injury [Unknown]
  - Spinal column injury [Recovered/Resolved]

NARRATIVE: CASE EVENT DATE: 20120315
